FAERS Safety Report 5090181-1 (Version None)
Quarter: 2006Q3

REPORT INFORMATION
  Report Type: 
  Country: None (occurrence: None)
  Receive Date: 20060828
  Receipt Date: 20060505
  Transmission Date: 20061208
  Serious: Yes (Death, Life-Threatening, Hospitalization, Disabling, Other)
  Sender: FDA-Public Use
  Company Number: US-GLAXOSMITHKLINE-A0604495A

PATIENT
  Age: 80 Year
  Sex: Female
  Weight: 70.5 kg

DRUGS (8)
  1. REQUIP [Suspect]
     Indication: PARKINSON'S DISEASE
     Dosage: 3MG THREE TIMES PER DAY
     Route: 048
     Dates: start: 20060201
  2. MIRAPEX [Concomitant]
     Indication: PARKINSON'S DISEASE
     Dosage: 1.5MG THREE TIMES PER DAY
     Route: 048
     Dates: start: 20010401
  3. NEXIUM [Concomitant]
     Dosage: 40MG PER DAY
  4. DETROL [Concomitant]
     Indication: INCONTINENCE
     Dosage: 2MG PER DAY
     Route: 048
  5. SYNTHROID [Concomitant]
     Indication: HYPOTHYROIDISM
     Dosage: .075MG PER DAY
     Route: 048
  6. MINOCYCLINE HCL [Concomitant]
     Dosage: 100MG PER DAY
     Route: 048
  7. IBUPROFEN [Concomitant]
  8. ASPIRIN [Concomitant]

REACTIONS (1)
  - PANCREATITIS [None]
